FAERS Safety Report 7244123-0 (Version None)
Quarter: 2011Q1

REPORT INFORMATION
  Report Type: 
  Country: None (occurrence: None)
  Receive Date: 20110119
  Receipt Date: 20110119
  Transmission Date: 20110831
  Serious: Yes (Other)
  Sender: FDA-Public Use
  Company Number: None

PATIENT
  Age: 83 Year
  Sex: Female
  Weight: 54 kg

DRUGS (3)
  1. DABIGATRAN 75MG BOERINGER INGELHEIM [Suspect]
     Indication: ATRIAL FIBRILLATION
     Dosage: 75MG BID PO
     Route: 048
     Dates: start: 20101222, end: 20101231
  2. ASPIRIN [Concomitant]
  3. PLAVIX [Suspect]
     Dosage: 75MG DAILY PO
     Route: 048

REACTIONS (1)
  - SPLENIC HAEMATOMA [None]
